FAERS Safety Report 7616671-2 (Version None)
Quarter: 2011Q3

REPORT INFORMATION
  Report Type: 
  Country: None (occurrence: None)
  Receive Date: 20110717
  Receipt Date: 20110704
  Transmission Date: 20111222
  Serious: Yes (Other)
  Sender: FDA-Public Use
  Company Number: PHHY2011CA35901

PATIENT
  Sex: Female

DRUGS (2)
  1. ATENOLOL [Concomitant]
  2. SANDOSTATIN LAR [Suspect]
     Indication: NEUROENDOCRINE TUMOUR
     Dosage: 30 MG, QMO
     Route: 030
     Dates: start: 20110308

REACTIONS (9)
  - BACK PAIN [None]
  - BLOOD PRESSURE INCREASED [None]
  - MEMORY IMPAIRMENT [None]
  - ARTHRALGIA [None]
  - SMEAR CERVIX ABNORMAL [None]
  - HEADACHE [None]
  - FLATULENCE [None]
  - HYPERHIDROSIS [None]
  - DIARRHOEA [None]
